FAERS Safety Report 6978088-3 (Version None)
Quarter: 2010Q3

REPORT INFORMATION
  Report Type: 
  Country: None (occurrence: None)
  Receive Date: 20100913
  Receipt Date: 20100830
  Transmission Date: 20110219
  Serious: Yes (Hospitalization)
  Sender: FDA-Public Use
  Company Number: ES-ELI_LILLY_AND_COMPANY-ES201008008669

PATIENT
  Sex: Female
  Weight: 58 kg

DRUGS (5)
  1. FORTEO [Suspect]
     Indication: OSTEOPOROSIS
     Dosage: 20 UG, DAILY (1/D)
     Route: 058
     Dates: start: 20100115
  2. EUTIROX [Concomitant]
     Indication: THYROID DISORDER
     Dosage: 50 UG, DAILY (1/D)
     Route: 048
     Dates: start: 20080101
  3. ENALAPRIL [Concomitant]
     Indication: HYPERTENSION
     Dosage: 5 MG, DAILY (1/D)
     Route: 048
     Dates: start: 20030101
  4. PAROXETINE HCL [Concomitant]
     Indication: DEPRESSION
     Dosage: 1 D/F, DAILY (1/D)
     Route: 048
     Dates: start: 20040101
  5. IDEOS [Concomitant]
     Indication: MINERAL SUPPLEMENTATION
     Dosage: 1 D/F, DAILY (1/D)
     Route: 048

REACTIONS (2)
  - ANKLE FRACTURE [None]
  - FALL [None]
